FAERS Safety Report 23968617 (Version 2)
Quarter: 2024Q2

REPORT INFORMATION
  Report Type: Report from Study
  Country: US (occurrence: US)
  Receive Date: 20240612
  Receipt Date: 20240624
  Transmission Date: 20240716
  Serious: Yes (Hospitalization, Other)
  Sender: FDA-Public Use
  Company Number: US-ABBVIE-5690715

PATIENT
  Age: 74 Year
  Sex: Female
  Weight: 91 kg

DRUGS (5)
  1. IMBRUVICA [Suspect]
     Active Substance: IBRUTINIB
     Indication: Chronic lymphocytic leukaemia
     Dosage: FORM STRENGTH: 140 MILLIGRAMS
     Route: 048
     Dates: start: 202303, end: 202303
  2. IMBRUVICA [Suspect]
     Active Substance: IBRUTINIB
     Indication: Chronic lymphocytic leukaemia
     Dosage: FORM STRENGTH: 140 MILLIGRAMS
     Route: 048
     Dates: start: 20230331
  3. IMBRUVICA [Suspect]
     Active Substance: IBRUTINIB
     Indication: Chronic lymphocytic leukaemia
     Dosage: FORM STRENGTH: 140 MILLIGRAMS
     Route: 048
     Dates: start: 2024
  4. ALLOPURINOL [Concomitant]
     Active Substance: ALLOPURINOL
     Indication: Blood uric acid
  5. KEYTRUDA [Concomitant]
     Active Substance: PEMBROLIZUMAB
     Indication: Product used for unknown indication

REACTIONS (11)
  - White blood cell count decreased [Not Recovered/Not Resolved]
  - Vomiting [Recovered/Resolved]
  - Diarrhoea [Recovered/Resolved]
  - Pulmonary mass [Unknown]
  - Transient ischaemic attack [Unknown]
  - Diarrhoea [Recovered/Resolved]
  - Cerebral haemorrhage [Unknown]
  - Lung carcinoma cell type unspecified stage IV [Not Recovered/Not Resolved]
  - Platelet count decreased [Unknown]
  - Anxiety [Unknown]
  - Brain neoplasm [Not Recovered/Not Resolved]

NARRATIVE: CASE EVENT DATE: 20240308
